FAERS Safety Report 9263258 (Version 1)
Quarter: 2013Q2

REPORT INFORMATION
  Report Type: Spontaneous
  Country: US (occurrence: None)
  Receive Date: 20130429
  Receipt Date: 20130429
  Transmission Date: 20140414
  Serious: Yes (Death, Life-Threatening, Hospitalization)
  Sender: FDA-Public Use
  Company Number: None

PATIENT
  Age: 56 Year
  Sex: Male
  Weight: 90.72 kg

DRUGS (1)
  1. REMICADE [Suspect]
     Indication: RHEUMATOID ARTHRITIS
     Dosage: 1 INFUSION 2/2006, ARM?2ND INFUSION 3/2006, ARM
     Dates: start: 200602, end: 200603

REACTIONS (5)
  - Drug hypersensitivity [None]
  - Lung disorder [None]
  - Infusion site dermatitis [None]
  - Infection [None]
  - Toxic epidermal necrolysis [None]
